FAERS Safety Report 14496936 (Version 1)
Quarter: 2018Q1

REPORT INFORMATION
  Report Type: Spontaneous
  Country: US (occurrence: US)
  Receive Date: 20180207
  Receipt Date: 20180207
  Transmission Date: 20180509
  Serious: No
  Sender: FDA-Public Use
  Company Number: None

PATIENT
  Age: 74 Year
  Sex: Female
  Weight: 58.97 kg

DRUGS (1)
  1. AMOXICILLIN. [Suspect]
     Active Substance: AMOXICILLIN
     Indication: SINUSITIS
     Dosage: 2 PILLS TWICE PER DAY MOUTH
     Route: 048
     Dates: start: 20180110

REACTIONS (3)
  - Burning sensation [None]
  - Product intolerance [None]
  - Abdominal pain [None]

NARRATIVE: CASE EVENT DATE: 20180110
